FAERS Safety Report 7023493-2 (Version None)
Quarter: 2010Q3

REPORT INFORMATION
  Report Type: 
  Country: None (occurrence: None)
  Receive Date: 20100929
  Receipt Date: 20100929
  Transmission Date: 20110219
  Serious: Yes (Other)
  Sender: FDA-Public Use
  Company Number: None

PATIENT
  Sex: Male

DRUGS (2)
  1. METHYLPREDNISOLONE [Suspect]
     Indication: ANTIINFLAMMATORY THERAPY
     Dosage: METHYLPREDNISOLONE 4MG I QID PO
     Route: 048
     Dates: start: 19920101, end: 19990101
  2. METHYLPREDNISOLONE [Suspect]
     Indication: ANTIINFLAMMATORY THERAPY
     Dosage: METHYLPREDNISOLONE 4MG I QID PO
     Route: 048
     Dates: start: 20090701

REACTIONS (12)
  - ADVERSE DRUG REACTION [None]
  - CONSTIPATION [None]
  - DEPRESSION [None]
  - HOT FLUSH [None]
  - INFLUENZA LIKE ILLNESS [None]
  - INSOMNIA [None]
  - MOOD SWINGS [None]
  - OEDEMA PERIPHERAL [None]
  - PAIN [None]
  - PRODUCT SUBSTITUTION ISSUE [None]
  - PRURITUS [None]
  - WEIGHT INCREASED [None]
